FAERS Safety Report 16915530 (Version 1)
Quarter: 2019Q4

REPORT INFORMATION
  Report Type: Spontaneous
  Country: US (occurrence: US)
  Receive Date: 20191012
  Receipt Date: 20191012
  Transmission Date: 20200122
  Serious: Yes (Other)
  Sender: FDA-Public Use
  Company Number: None

PATIENT
  Age: 58 Year
  Sex: Female
  Weight: 58.5 kg

DRUGS (13)
  1. TIZANIDINE 4MG [Suspect]
     Active Substance: TIZANIDINE
     Indication: SCIATICA
     Route: 048
     Dates: start: 20191010, end: 20191010
  2. CARVEDILOL. [Concomitant]
     Active Substance: CARVEDILOL
  3. GABAPENTINE [Concomitant]
     Active Substance: GABAPENTIN
  4. CALCIUM [Concomitant]
     Active Substance: CALCIUM
  5. LISINOPRIL. [Concomitant]
     Active Substance: LISINOPRIL
  6. MIMVE [Concomitant]
  7. FISH OIL [Concomitant]
     Active Substance: FISH OIL
  8. VITAMIN D [Concomitant]
     Active Substance: VITAMIN D NOS
  9. LASIX [Concomitant]
     Active Substance: FUROSEMIDE
  10. POTASSIUM [Concomitant]
     Active Substance: POTASSIUM
  11. TIZANIDINE 4MG [Suspect]
     Active Substance: TIZANIDINE
     Indication: BACK PAIN
     Route: 048
     Dates: start: 20191010, end: 20191010
  12. VITAMIN C [Concomitant]
     Active Substance: ASCORBIC ACID
  13. ATORVASTATIN [Concomitant]
     Active Substance: ATORVASTATIN

REACTIONS (11)
  - Feeling abnormal [None]
  - Movement disorder [None]
  - Mental impairment [None]
  - Balance disorder [None]
  - Asthenia [None]
  - Headache [None]
  - Hypoaesthesia [None]
  - Hypoaesthesia oral [None]
  - Nausea [None]
  - Somnolence [None]
  - Dizziness [None]

NARRATIVE: CASE EVENT DATE: 20191010
